FAERS Safety Report 4717825-5 (Version None)
Quarter: 2005Q3

REPORT INFORMATION
  Report Type: 
  Country: None (occurrence: None)
  Receive Date: 20050715
  Receipt Date: 20050708
  Transmission Date: 20060218
  Serious: Yes (Death)
  Sender: FDA-Public Use
  Company Number: CH-2005-010159

PATIENT
  Age: 59 Year
  Sex: Male

DRUGS (2)
  1. REFLUDAN [Suspect]
     Indication: ANTICOAGULANT THERAPY
     Dosage: PARENTERAL SEE IMAGE
     Route: 051
     Dates: start: 20050511, end: 20050512
  2. REFLUDAN [Suspect]
     Indication: ANTICOAGULANT THERAPY
     Dosage: PARENTERAL SEE IMAGE
     Route: 051
     Dates: start: 20050509

REACTIONS (8)
  - ANAEMIA [None]
  - BRAIN DEATH [None]
  - CEREBRAL HAEMORRHAGE [None]
  - DEEP VEIN THROMBOSIS [None]
  - DEPRESSED LEVEL OF CONSCIOUSNESS [None]
  - HAEMATURIA [None]
  - RESPIRATORY ARREST [None]
  - SUBARACHNOID HAEMORRHAGE [None]
